FAERS Safety Report 5367237-9 (Version None)
Quarter: 2007Q2

REPORT INFORMATION
  Report Type: 
  Country: None (occurrence: None)
  Receive Date: 20070622
  Receipt Date: 20070618
  Transmission Date: 20071010
  Serious: Yes (Hospitalization)
  Sender: FDA-Public Use
  Company Number: PHBS2007US10261

PATIENT
  Age: 13 Year
  Sex: Female

DRUGS (4)
  1. METHYLPREDNISOLONE [Suspect]
     Indication: DERMATOMYOSITIS
     Route: 042
  2. PREDNISONE TAB [Suspect]
     Dosage: 60 MG/D
  3. METHOTREXATE [Suspect]
     Dosage: UNK, QW
  4. CYCLOSPORINE [Suspect]
     Indication: DERMATOMYOSITIS
     Route: 065

REACTIONS (13)
  - ABDOMINAL PAIN [None]
  - ABDOMINAL PAIN LOWER [None]
  - BOWEL SOUNDS ABNORMAL [None]
  - COLECTOMY [None]
  - COLOSTOMY [None]
  - CONSTIPATION [None]
  - DUODENAL PERFORATION [None]
  - INTESTINAL PERFORATION [None]
  - OEDEMA MUCOSAL [None]
  - PERITONITIS [None]
  - PNEUMOPERITONEUM [None]
  - PURULENT DISCHARGE [None]
  - SURGERY [None]
